FAERS Safety Report 4431698-X (Version None)
Quarter: 2004Q3

REPORT INFORMATION
  Report Type: 
  Country: None (occurrence: None)
  Receive Date: 20040825
  Receipt Date: 20040813
  Transmission Date: 20050211
  Serious: Yes (Disabling, Other)
  Sender: FDA-Public Use
  Company Number: US-JNJFOC-20030703580

PATIENT
  Sex: Male
  Weight: 62.6 kg

DRUGS (7)
  1. REMICADE [Suspect]
     Route: 042
  2. REMICADE [Suspect]
     Route: 042
  3. REMICADE [Suspect]
     Route: 042
  4. PENTASA [Concomitant]
  5. QUESTRAN [Concomitant]
  6. B12 [Concomitant]
  7. ENALAPRIL MALEATE [Concomitant]

REACTIONS (4)
  - MICROANGIOPATHY [None]
  - MYELITIS TRANSVERSE [None]
  - NEUROPATHY PERIPHERAL [None]
  - NUCLEAR MAGNETIC RESONANCE IMAGING ABNORMAL [None]
